FAERS Safety Report 17262020 (Version 1)
Quarter: 2020Q1

REPORT INFORMATION
  Report Type: Spontaneous
  Country: DE (occurrence: DE)
  Receive Date: 20200113
  Receipt Date: 20200113
  Transmission Date: 20200409
  Serious: Yes (Other)
  Sender: FDA-Public Use
  Company Number: DE-009507513-2001DEU001149

PATIENT
  Age: 60 Year
  Sex: Female

DRUGS (11)
  1. L-THYROXIN [Concomitant]
     Active Substance: LEVOTHYROXINE SODIUM
     Dosage: INTAKE FOR MONTHS
  2. MIRTAZAPINE. [Suspect]
     Active Substance: MIRTAZAPINE
     Dosage: 30 MILLIGRAM, QD
     Dates: start: 20181120, end: 20181120
  3. VENLAFAXINE HYDROCHLORIDE. [Suspect]
     Active Substance: VENLAFAXINE HYDROCHLORIDE
     Dosage: 75 MILLIGRAM, QD
     Dates: start: 20181121, end: 20181121
  4. VENLAFAXINE HYDROCHLORIDE. [Suspect]
     Active Substance: VENLAFAXINE HYDROCHLORIDE
     Dosage: 150 MILLIGRAM, QD
     Dates: start: 20181122, end: 20181128
  5. MIRTAZAPINE. [Suspect]
     Active Substance: MIRTAZAPINE
     Dosage: INTAKE FOR MONTHS
     Dates: end: 20181119
  6. REAGILA [Suspect]
     Active Substance: CARIPRAZINE
     Dosage: 3 MILLIGRAM, QD
     Dates: start: 20181121
  7. MIRTAZAPINE. [Suspect]
     Active Substance: MIRTAZAPINE
     Dosage: 15 MILLIGRAM, QD
     Dates: start: 20181121
  8. PIPAMPERONE [Suspect]
     Active Substance: PIPAMPERONE
     Dosage: 40 MILLIGRAM, QD
     Dates: start: 20181104
  9. ASS 100 [Concomitant]
     Active Substance: ASPIRIN
     Dosage: 100 MILLIGRAM, QD
     Dates: start: 20181108
  10. LAMOTRIGINE. [Suspect]
     Active Substance: LAMOTRIGINE
     Dosage: FOR MONTHS
  11. REAGILA [Suspect]
     Active Substance: CARIPRAZINE
     Dosage: 1.5 MILLIGRAM, QD
     Dates: start: 20181115, end: 20181120

REACTIONS (1)
  - Tongue discomfort [Recovered/Resolved]

NARRATIVE: CASE EVENT DATE: 20181124
